FAERS Safety Report 6231712-5 (Version None)
Quarter: 2009Q2

REPORT INFORMATION
  Report Type: 
  Country: None (occurrence: None)
  Receive Date: 20090612
  Receipt Date: 20090612
  Transmission Date: 20091009
  Serious: Yes (Hospitalization)
  Sender: FDA-Public Use
  Company Number: None

PATIENT
  Sex: Female
  Weight: 13.5 kg

DRUGS (5)
  1. DOXORUBICIN HCL [Suspect]
     Dosage: 42.75 MG
  2. G-CSF (FILGRASTIM, AMGEN) [Suspect]
  3. MESNA [Suspect]
     Dosage: 1436.4 MG
  4. VINCRISTINE SULFATE [Suspect]
     Dosage: .87 MG
  5. CYCLOPHOSPHAMIDE [Suspect]
     Dosage: 2394 MG

REACTIONS (20)
  - ALPHA HAEMOLYTIC STREPTOCOCCAL INFECTION [None]
  - BLOOD CULTURE POSITIVE [None]
  - BLOOD POTASSIUM DECREASED [None]
  - CARDIAC ARREST [None]
  - CARDIAC DISORDER [None]
  - CITROBACTER INFECTION [None]
  - DEHYDRATION [None]
  - DIAPHRAGMATIC PARALYSIS [None]
  - DIARRHOEA [None]
  - ENTEROBACTER INFECTION [None]
  - HYPOTENSION [None]
  - HYPOXIC ENCEPHALOPATHY [None]
  - NEUTROPENIA [None]
  - PATHOGEN RESISTANCE [None]
  - PERITONEAL DIALYSIS [None]
  - PYREXIA [None]
  - RENAL FAILURE ACUTE [None]
  - RESPIRATORY FAILURE [None]
  - SEPTIC SHOCK [None]
  - SHOCK [None]
